FAERS Safety Report 17452878 (Version 1)
Quarter: 2020Q1

REPORT INFORMATION
  Report Type: Spontaneous
  Country: US (occurrence: US)
  Receive Date: 20200224
  Receipt Date: 20200224
  Transmission Date: 20200409
  Serious: Yes (Other)
  Sender: FDA-Public Use
  Company Number: US-AMGEN-USASP2020028589

PATIENT

DRUGS (2)
  1. CARFILZOMIB [Suspect]
     Active Substance: CARFILZOMIB
     Indication: PLASMA CELL MYELOMA
     Dosage: 1.2 MG/M2  TO 27 MG/M2 ON DAYS 1, 2, 8, 9, 15 AND 16 WITH 12 DAYS REST
     Route: 042
  2. CARFILZOMIB [Suspect]
     Active Substance: CARFILZOMIB
     Indication: NON-HODGKIN^S LYMPHOMA
     Dosage: 1.2 MG/M2  TO 27 MG/M2 ON DAYS 1, 2, 8, 9, 15 AND 16 WITH 12 DAYS REST
     Route: 042

REACTIONS (4)
  - Thrombocytopenia [Recovered/Resolved]
  - Blood creatinine abnormal [Recovered/Resolved]
  - Hypoxia [Recovered/Resolved]
  - Therapeutic product effect incomplete [Unknown]
